FAERS Safety Report 14258964 (Version 1)
Quarter: 2017Q4

REPORT INFORMATION
  Report Type: Report from Study
  Country: IQ (occurrence: IQ)
  Receive Date: 20171207
  Receipt Date: 20171207
  Transmission Date: 20180321
  Serious: Yes (Hospitalization, Other)
  Sender: FDA-Public Use
  Company Number: PHHY2017IQ175088

PATIENT
  Sex: Female

DRUGS (1)
  1. TASIGNA [Suspect]
     Active Substance: NILOTINIB
     Indication: CHRONIC MYELOID LEUKAEMIA
     Dosage: 800 MG, QD
     Route: 048
     Dates: start: 2014

REACTIONS (7)
  - Cholecystitis [Unknown]
  - Menstrual disorder [Not Recovered/Not Resolved]
  - Insomnia [Unknown]
  - Influenza [Not Recovered/Not Resolved]
  - Cough [Unknown]
  - Chills [Not Recovered/Not Resolved]
  - Abdominal pain upper [Recovering/Resolving]
